FAERS Safety Report 9188060 (Version 1)
Quarter: 2013Q1

REPORT INFORMATION
  Report Type: Spontaneous
  Country: US (occurrence: US)
  Receive Date: 20130325
  Receipt Date: 20130325
  Transmission Date: 20140127
  Serious: No
  Sender: FDA-Public Use
  Company Number: US-MYLANLABS-2013S1001079

PATIENT
  Age: 63 Year
  Sex: Male
  Weight: 60.33 kg

DRUGS (7)
  1. FENTANYL TRANSDERMAL SYSTEM [Suspect]
     Indication: MUSCULOSKELETAL PAIN
     Dosage: CHANGED Q72H
     Route: 062
     Dates: start: 20130111, end: 20130114
  2. NADOLOL [Concomitant]
     Indication: HYPERTENSION
     Route: 048
  3. CRESTOR [Concomitant]
     Indication: BLOOD CHOLESTEROL INCREASED
     Route: 048
  4. PLAVIX [Concomitant]
     Indication: ANTIPLATELET THERAPY
     Route: 048
  5. ASA [Concomitant]
     Indication: ANTIPLATELET THERAPY
     Route: 048
  6. TOPROL [Concomitant]
     Indication: HYPERTENSION
     Route: 048
  7. POTASSIUM [Concomitant]
     Indication: BLOOD POTASSIUM DECREASED
     Route: 048

REACTIONS (6)
  - Nausea [Recovered/Resolved]
  - Vomiting [Recovered/Resolved]
  - Diarrhoea [Recovered/Resolved]
  - Restlessness [Recovered/Resolved]
  - Heart rate decreased [Recovered/Resolved]
  - Blood pressure increased [Recovered/Resolved]
